FAERS Safety Report 7467946-1 (Version None)
Quarter: 2011Q2

REPORT INFORMATION
  Report Type: 
  Country: None (occurrence: None)
  Receive Date: 20110509
  Receipt Date: 20110214
  Transmission Date: 20111010
  Serious: No
  Sender: FDA-Public Use
  Company Number: US-ALEXION-A201100187

PATIENT
  Sex: Male

DRUGS (4)
  1. MULTI-VITAMINS [Concomitant]
     Indication: SUPPLEMENTATION THERAPY
     Dosage: UNK
     Route: 048
  2. TYLENOL (CAPLET) [Concomitant]
     Indication: HEADACHE
     Dosage: UNK
  3. ALLEGRA [Concomitant]
     Indication: HYPERSENSITIVITY
     Dosage: UNK
     Route: 048
  4. SOLIRIS [Suspect]
     Indication: PAROXYSMAL NOCTURNAL HAEMOGLOBINURIA
     Dosage: 900 MG, Q2W
     Route: 042

REACTIONS (12)
  - CHEST PAIN [None]
  - PAIN [None]
  - NIGHT SWEATS [None]
  - MALAISE [None]
  - PYREXIA [None]
  - DYSPEPSIA [None]
  - DECREASED APPETITE [None]
  - NAUSEA [None]
  - ABDOMINAL DISTENSION [None]
  - CHROMATURIA [None]
  - CHILLS [None]
  - DIARRHOEA [None]
